FAERS Safety Report 8798844 (Version 1)
Quarter: 2012Q4

REPORT INFORMATION
  Report Type: 
  Country: US (occurrence: US)
  Receive Date: 20120920
  Receipt Date: 20120920
  Transmission Date: 20130627
  Serious: Yes (Death)
  Sender: FDA-Public Use
  Company Number: US-GLAXOSMITHKLINE-A0994032A

PATIENT
  Age: 54 Year
  Sex: Female

DRUGS (6)
  1. VOTRIENT [Suspect]
     Indication: PRODUCT USED FOR UNKNOWN INDICATION
     Dosage: 800MG Per day
     Route: 048
  2. LISINOPRIL [Concomitant]
  3. ENSURE [Concomitant]
  4. POTASSIUM [Concomitant]
  5. FENTANYL [Concomitant]
  6. DILAUDID [Concomitant]

REACTIONS (1)
  - Death [Fatal]
